FAERS Safety Report 5033242-5 (Version None)
Quarter: 2006Q2

REPORT INFORMATION
  Report Type: 
  Country: None (occurrence: None)
  Receive Date: 20060620
  Receipt Date: 20060607
  Transmission Date: 20061013
  Serious: Yes (Disabling)
  Sender: FDA-Public Use
  Company Number: 2006-143408-NL

PATIENT
  Age: 60 Year
  Sex: Male

DRUGS (1)
  1. DEXAMETHASONE TAB [Suspect]
     Indication: PROGRESSIVE MULTIPLE SCLEROSIS
     Dosage: 15 MG ORAL
     Route: 048

REACTIONS (2)
  - CONDITION AGGRAVATED [None]
  - PROGRESSIVE MULTIPLE SCLEROSIS [None]
